FAERS Safety Report 23035503 (Version 3)
Quarter: 2024Q1

REPORT INFORMATION
  Report Type: Report from Study
  Country: GB (occurrence: GB)
  Receive Date: 20231006
  Receipt Date: 20240201
  Transmission Date: 20240410
  Serious: Yes (Other)
  Sender: FDA-Public Use
  Company Number: GB-SANDOZ-SDZ2023GB037034

PATIENT
  Sex: Male

DRUGS (1)
  1. HYRIMOZ [Suspect]
     Active Substance: ADALIMUMAB-ADAZ
     Indication: Crohn^s disease
     Dosage: 40 MG, EOW (STRENGTH: 40MG/0.8M, PRE-FILLED PENS 2 PRE-FILLED DISPOSABLE INJECTION)
     Route: 058

REACTIONS (2)
  - Retinal tear [Unknown]
  - Eye pain [Unknown]
